FAERS Safety Report 16904053 (Version 1)
Quarter: 2019Q4

REPORT INFORMATION
  Report Type: Spontaneous
  Country: US (occurrence: US)
  Receive Date: 20191009
  Receipt Date: 20191009
  Transmission Date: 20200122
  Serious: No
  Sender: FDA-Public Use
  Company Number: None

PATIENT
  Age: 34 Year
  Sex: Male
  Weight: 83.25 kg

DRUGS (1)
  1. METHYLPHENIDATE 54MG ER TABLETS GENERIC CONCERTA [Suspect]
     Active Substance: METHYLPHENIDATE HYDROCHLORIDE
     Indication: ATTENTION DEFICIT/HYPERACTIVITY DISORDER
     Dosage: ?          QUANTITY:60 TABLET(S);?
     Route: 048
     Dates: start: 20190930, end: 20191007

REACTIONS (8)
  - Product substitution issue [None]
  - Tremor [None]
  - Headache [None]
  - Therapeutic product effect incomplete [None]
  - Nervousness [None]
  - Insomnia [None]
  - Somnolence [None]
  - Mood swings [None]

NARRATIVE: CASE EVENT DATE: 20190930
